FAERS Safety Report 5673924-5 (Version None)
Quarter: 2008Q2

REPORT INFORMATION
  Report Type: 
  Country: None (occurrence: None)
  Receive Date: 20080228
  Receipt Date: 20070615
  Transmission Date: 20081010
  Serious: Yes (Other)
  Sender: FDA-Public Use
  Company Number: US200706003572

PATIENT
  Age: 21 Year
  Sex: Male
  Weight: 97.5 kg

DRUGS (4)
  1. SYMBYAX [Suspect]
     Indication: BIPOLAR DISORDER
     Dosage: DAILY (1/D), 2/D, DAILY (1/D)
     Dates: end: 20070607
  2. SYMBYAX [Suspect]
     Indication: BIPOLAR DISORDER
     Dosage: DAILY (1/D), 2/D, DAILY (1/D)
     Dates: start: 20070608
  3. KLONOPIN [Concomitant]
  4. ADDERALL (AMFETAMINE ASPARTATE, AMFETAMINE SULFATE, DEXAMFETAMINE SACC [Concomitant]

REACTIONS (3)
  - LIBIDO DECREASED [None]
  - OVERDOSE [None]
  - WEIGHT INCREASED [None]
